FAERS Safety Report 7341852-5 (Version None)
Quarter: 2011Q1

REPORT INFORMATION
  Report Type: 
  Country: None (occurrence: None)
  Receive Date: 20110309
  Receipt Date: 20110225
  Transmission Date: 20110831
  Serious: Yes (Hospitalization)
  Sender: FDA-Public Use
  Company Number: AU-ELI_LILLY_AND_COMPANY-AU201102006956

PATIENT
  Age: 64 Year
  Sex: Male

DRUGS (5)
  1. ASPIRIN [Concomitant]
  2. CYMBALTA [Suspect]
     Dosage: 60 MG, OTHER
     Route: 048
     Dates: start: 20110216, end: 20110218
  3. CRESTOR [Concomitant]
  4. LEVOTHYROXINE SODIUM [Concomitant]
  5. CYMBALTA [Suspect]
     Indication: NEURALGIA
     Dosage: 60 MG, DAILY (1/D)
     Route: 048
     Dates: start: 20110130, end: 20110202

REACTIONS (12)
  - DECREASED APPETITE [None]
  - DYSPHONIA [None]
  - INSOMNIA [None]
  - NAUSEA [None]
  - INTENTIONAL DRUG MISUSE [None]
  - OFF LABEL USE [None]
  - AGITATION [None]
  - TREMOR [None]
  - ABNORMAL DREAMS [None]
  - DIZZINESS [None]
  - ERUCTATION [None]
  - VISION BLURRED [None]
